FAERS Safety Report 8912824 (Version 1)
Quarter: 2012Q4

REPORT INFORMATION
  Report Type: Report from Study
  Country: JP (occurrence: JP)
  Receive Date: 20121116
  Receipt Date: 20121116
  Transmission Date: 20130627
  Serious: Yes (Other)
  Sender: FDA-Public Use
  Company Number: JP-VERTEX PHARMACEUTICAL INC.-2012-024614

PATIENT
  Age: 60 Year
  Sex: Male

DRUGS (8)
  1. VX-950 (TELAPREVIR) [Suspect]
     Indication: CHRONIC HEPATITIS C
     Dosage: 2250 mg, qd
     Route: 048
     Dates: start: 20120920, end: 20120923
  2. VX-950 (TELAPREVIR) [Suspect]
     Dosage: 1500 mg, qd
     Route: 048
     Dates: start: 20121002
  3. RIBAVIRIN [Concomitant]
     Dosage: 800 mg, qd
     Route: 048
     Dates: start: 20120919, end: 20121007
  4. RIBAVIRIN [Concomitant]
     Dosage: 400 mg, qd
     Route: 048
     Dates: start: 20121008
  5. PEGINTERFERON ALFA-2B [Concomitant]
     Dosage: 1.5 ?g/kg, qw
     Route: 058
     Dates: start: 20120920, end: 20120927
  6. PEGINTERFERON ALFA-2B [Concomitant]
     Dosage: 1.0 ?g/kg, qw
     Route: 058
     Dates: start: 20121001, end: 20121008
  7. PEGINTERFERON ALFA-2B [Concomitant]
     Dosage: 1.2 ?g/kg, qw
     Route: 058
     Dates: start: 20121009
  8. PEGINTERFERON ALFA-2B [Concomitant]
     Dosage: 1.5 ?g/kg, UNK
     Route: 058
     Dates: start: 20121016

REACTIONS (1)
  - Intra-abdominal haemorrhage [Recovered/Resolved]
